FAERS Safety Report 9113881 (Version 1)
Quarter: 2013Q1

REPORT INFORMATION
  Report Type: Report from Study
  Country: CA (occurrence: CA)
  Receive Date: 20130208
  Receipt Date: 20130208
  Transmission Date: 20140127
  Serious: Yes (Death, Hospitalization)
  Sender: FDA-Public Use
  Company Number: CA-JNJFOC-20120800837

PATIENT
  Sex: Female

DRUGS (6)
  1. SIMPONI [Suspect]
     Indication: RHEUMATOID ARTHRITIS
     Route: 058
     Dates: start: 20120510, end: 20120710
  2. IRON SUPPLEMENT [Concomitant]
  3. METHOTREXATE [Concomitant]
  4. PLAQUENIL [Concomitant]
  5. LEUCOVORIN [Concomitant]
  6. SLOW K [Concomitant]

REACTIONS (2)
  - Infection [Fatal]
  - Tooth infection [Unknown]
